APPROVED DRUG PRODUCT: PENICILLAMINE
Active Ingredient: PENICILLAMINE
Strength: 250MG
Dosage Form/Route: TABLET;ORAL
Application: A212933 | Product #001 | TE Code: AB
Applicant: LUPIN LTD
Approved: Nov 30, 2020 | RLD: No | RS: No | Type: RX